FAERS Safety Report 7751837-2 (Version None)
Quarter: 2011Q3

REPORT INFORMATION
  Report Type: 
  Country: None (occurrence: None)
  Receive Date: 20110914
  Receipt Date: 20110914
  Transmission Date: 20111222
  Serious: No
  Sender: FDA-Public Use
  Company Number: None

PATIENT
  Sex: Female
  Weight: 54.7 kg

DRUGS (4)
  1. MERCAPTOPURINE [Suspect]
     Dosage: 6148 MG
  2. VINCRISTINE [Concomitant]
     Dosage: 6 MG
  3. PREDNISONE [Concomitant]
     Dosage: 900 MG
  4. METHOTREXATE [Suspect]
     Dosage: 250 MG

REACTIONS (5)
  - ABDOMINAL PAIN [None]
  - VAGINAL HAEMORRHAGE [None]
  - PREGNANCY [None]
  - NAUSEA [None]
  - ABORTION SPONTANEOUS [None]
